FAERS Safety Report 7006567-1 (Version None)
Quarter: 2010Q3

REPORT INFORMATION
  Report Type: 
  Country: None (occurrence: None)
  Receive Date: 20100921
  Receipt Date: 20090806
  Transmission Date: 20110219
  Serious: No
  Sender: FDA-Public Use
  Company Number: US-WYE-H09987709

PATIENT
  Sex: Male
  Weight: 89 kg

DRUGS (2)
  1. XYNTHA [Suspect]
     Indication: HAEMOPHILIA
     Dosage: UNSPECIFIED INFUSION 2 TIMES PER WEEK
     Route: 042
     Dates: start: 20090101, end: 20090601
  2. VICODIN [Concomitant]

REACTIONS (2)
  - LETHARGY [None]
  - SOMNOLENCE [None]
